FAERS Safety Report 18332724 (Version 1)
Quarter: 2020Q4

REPORT INFORMATION
  Report Type: Spontaneous
  Country: DE (occurrence: DE)
  Receive Date: 20201001
  Receipt Date: 20201001
  Transmission Date: 20210113
  Serious: Yes (Other)
  Sender: FDA-Public Use
  Company Number: DE-UCBSA-2020037968

PATIENT
  Age: 94 Year
  Sex: Female
  Weight: 50 kg

DRUGS (8)
  1. METOPROLOL SUCCINATE. [Concomitant]
     Active Substance: METOPROLOL SUCCINATE
     Dosage: 47.5 MG ONE DAIY , NTAKE FOR A LONG TIME
     Route: 048
  2. RAMIPRIL 1A PHARMA [Concomitant]
     Active Substance: RAMIPRIL
     Dosage: 10 MILLIGRAM, ONCE DAILY (QD) 1X1
     Route: 048
     Dates: start: 201909
  3. TORASEMID AL [Concomitant]
     Active Substance: TORSEMIDE
     Dosage: 5 MILLIGRAM, ONCE DAILY (QD), INTAKE FOR A LONG TIME
     Route: 048
  4. ATORVASTATIN RATIOPHARM [Concomitant]
     Active Substance: ATORVASTATIN
     Dosage: 20 MILLIGRAM, ONCE DAILY (QD), INTAKE FOR A LONG TIME
     Route: 048
  5. HALOPERIDOL-RATIOPHARM [Suspect]
     Active Substance: HALOPERIDOL
     Indication: SUBSTANCE-INDUCED PSYCHOTIC DISORDER
     Dosage: EXACT DOSAGE UNKNOWN, PROBABLY 1X1
     Route: 048
     Dates: start: 20200904, end: 20200905
  6. PALEXIA [Suspect]
     Active Substance: TAPENTADOL HYDROCHLORIDE
     Indication: PAIN
     Dosage: 50 MILLIGRAM, ONCE DAILY (QD), 1 DF AT NIGHT
     Route: 048
     Dates: start: 20200828, end: 20200905
  7. ELIQUIS [Concomitant]
     Active Substance: APIXABAN
     Dosage: 10 MILLIGRAM, ONCE DAILY (QD),2X1
     Route: 048
     Dates: start: 201908
  8. PROSTAVASIN [Suspect]
     Active Substance: ALPROSTADIL ALFADEX
     Indication: PRODUCT USED FOR UNKNOWN INDICATION
     Dosage: EXACT DOSAGE AND ROUTE OF ADMINISTRATION UNKNOWN
     Dates: start: 20200710

REACTIONS (6)
  - Malaise [Recovering/Resolving]
  - Circulatory collapse [Unknown]
  - Loss of personal independence in daily activities [Unknown]
  - Dizziness [Recovering/Resolving]
  - Fall [Unknown]
  - Mobility decreased [Unknown]

NARRATIVE: CASE EVENT DATE: 202009
